FAERS Safety Report 6635373-2 (Version None)
Quarter: 2010Q1

REPORT INFORMATION
  Report Type: 
  Country: None (occurrence: None)
  Receive Date: 20100312
  Receipt Date: 20100312
  Transmission Date: 20100710
  Serious: Yes (Life-Threatening)
  Sender: FDA-Public Use
  Company Number: None

PATIENT
  Age: 58 Year
  Sex: Female
  Weight: 59.8748 kg

DRUGS (1)
  1. GEODON [Suspect]
     Indication: MANIA
     Dosage: ONE CAPSULE DAILY PO
     Route: 048
     Dates: start: 20091223, end: 20100311

REACTIONS (4)
  - ACCIDENTAL OVERDOSE [None]
  - APNOEA [None]
  - CIRCUMSTANCE OR INFORMATION CAPABLE OF LEADING TO MEDICATION ERROR [None]
  - SOMNOLENCE [None]
